FAERS Safety Report 11972845 (Version 8)
Quarter: 2017Q1

REPORT INFORMATION
  Report Type: Report from Study
  Country: GB (occurrence: GB)
  Receive Date: 20160128
  Receipt Date: 20170213
  Transmission Date: 20170428
  Serious: Yes (Other)
  Sender: FDA-Public Use
  Company Number: GB-SA-2016SA014659

PATIENT
  Age: 35 Year
  Sex: Male
  Weight: 98 kg

DRUGS (17)
  1. DALTEPARIN SODIUM [Concomitant]
     Active Substance: DALTEPARIN SODIUM
     Indication: DRUG THERAPY
     Route: 058
     Dates: start: 20150828, end: 201509
  2. ALEMTUZUMAB [Suspect]
     Active Substance: ALEMTUZUMAB
     Indication: MULTIPLE SCLEROSIS
     Route: 065
     Dates: start: 20130424, end: 20130426
  3. FLUCLOXACILLIN [Concomitant]
     Active Substance: FLUCLOXACILLIN
     Indication: DRUG THERAPY
     Route: 048
     Dates: start: 20150828, end: 201509
  4. ALEMTUZUMAB [Suspect]
     Active Substance: ALEMTUZUMAB
     Indication: MULTIPLE SCLEROSIS
     Route: 065
     Dates: start: 20110321, end: 20110325
  5. IBUPROFEN. [Concomitant]
     Active Substance: IBUPROFEN
     Indication: PROPHYLAXIS
     Route: 048
     Dates: start: 20150516
  6. VITAMIN B12 [Concomitant]
     Active Substance: CYANOCOBALAMIN
     Indication: DRUG THERAPY
     Route: 048
     Dates: start: 20110515
  7. VIAGRA [Concomitant]
     Active Substance: SILDENAFIL CITRATE
     Indication: ADJUVANT THERAPY
     Route: 048
     Dates: start: 200908
  8. LEVITRA [Concomitant]
     Active Substance: VARDENAFIL HYDROCHLORIDE TRIHYDRATE
     Indication: ADJUVANT THERAPY
     Route: 048
     Dates: start: 200909
  9. CARBIMAZOLE [Concomitant]
     Active Substance: CARBIMAZOLE
     Indication: PROPHYLAXIS
     Route: 048
     Dates: start: 20151116
  10. OMEGA 3 [Concomitant]
     Active Substance: OMEGA-3 FATTY ACIDS
     Indication: DRUG THERAPY
     Route: 048
     Dates: start: 201005
  11. IRON [Concomitant]
     Active Substance: IRON
     Indication: DRUG THERAPY
     Route: 048
     Dates: start: 20110515
  12. COCODAMOL [Concomitant]
     Active Substance: ACETAMINOPHEN\CODEINE PHOSPHATE
     Indication: DRUG THERAPY
     Route: 048
     Dates: start: 20150828, end: 201509
  13. VITAMIN B [Concomitant]
     Active Substance: VITAMIN B
     Indication: DRUG THERAPY
     Route: 048
     Dates: start: 20110515
  14. ALEMTUZUMAB [Suspect]
     Active Substance: ALEMTUZUMAB
     Indication: MULTIPLE SCLEROSIS
     Route: 065
     Dates: start: 20120321, end: 20120323
  15. ZINC. [Concomitant]
     Active Substance: ZINC
     Indication: DRUG THERAPY
     Route: 048
     Dates: start: 20110515
  16. IMODIUM [Concomitant]
     Active Substance: LOPERAMIDE HYDROCHLORIDE
     Indication: DRUG THERAPY
     Route: 048
     Dates: start: 200909
  17. VITAMIN D/CALCIUM [Concomitant]
     Indication: DRUG THERAPY
     Route: 048
     Dates: start: 20101210

REACTIONS (1)
  - Lymphopenia [Unknown]

NARRATIVE: CASE EVENT DATE: 20150318
